FAERS Safety Report 15160764 (Version 1)
Quarter: 2018Q3

REPORT INFORMATION
  Report Type: Report from Study
  Country: US (occurrence: US)
  Receive Date: 20180718
  Receipt Date: 20180718
  Transmission Date: 20181010
  Serious: Yes (Life-Threatening, Hospitalization, Disabling, Other)
  Sender: FDA-Public Use
  Company Number: US-TAKEDA-2018MPI006350

PATIENT
  Age: 82 Year
  Sex: Male
  Weight: 83 kg

DRUGS (28)
  1. VELCADE [Suspect]
     Active Substance: BORTEZOMIB
     Indication: PLASMA CELL MYELOMA
     Dosage: 2 MG, UNK
     Route: 058
     Dates: start: 20161129, end: 20170802
  2. CARVEDILOL. [Concomitant]
     Active Substance: CARVEDILOL
  3. FOLIC ACID. [Concomitant]
     Active Substance: FOLIC ACID
  4. PANTOPRAZOLE [Concomitant]
     Active Substance: PANTOPRAZOLE
  5. K FLEX [Concomitant]
     Active Substance: ORPHENADRINE
  6. ASPIRIN                            /00002701/ [Concomitant]
     Active Substance: ASPIRIN
     Indication: EMBOLISM VENOUS
  7. MAG?OX [Concomitant]
     Active Substance: MAGNESIUM OXIDE
  8. IXAZOMIB [Suspect]
     Active Substance: IXAZOMIB
     Indication: PLASMA CELL MYELOMA
     Dosage: 3 MG, UNK
     Route: 048
     Dates: start: 20180613, end: 20180613
  9. CYTOXAN [Suspect]
     Active Substance: CYCLOPHOSPHAMIDE
     Dosage: 250 MG, UNK
     Route: 048
     Dates: start: 20170906, end: 20180515
  10. DEXAMETHASONE. [Suspect]
     Active Substance: DEXAMETHASONE
     Dosage: 10 MG, UNK
     Route: 042
     Dates: start: 20170816, end: 20180515
  11. AMLODIPINE BESYLATE. [Concomitant]
     Active Substance: AMLODIPINE BESYLATE
  12. GRAPE SEED EXTRACT                 /01364603/ [Concomitant]
  13. IRON [Concomitant]
     Active Substance: IRON
  14. VITAMIN C [Concomitant]
     Active Substance: ASCORBIC ACID
  15. VELCADE [Suspect]
     Active Substance: BORTEZOMIB
     Dosage: 2 MG, UNK
     Route: 058
     Dates: start: 20170816, end: 20180515
  16. CYTOXAN [Suspect]
     Active Substance: CYCLOPHOSPHAMIDE
     Indication: PLASMA CELL MYELOMA
     Dosage: 500 MG, UNK
     Route: 048
     Dates: start: 20170816
  17. DEXAMETHASONE. [Suspect]
     Active Substance: DEXAMETHASONE
     Indication: PLASMA CELL MYELOMA
     Dosage: 10 MG, UNK
     Route: 042
     Dates: start: 20161129, end: 20170802
  18. NOVOLOG [Concomitant]
     Active Substance: INSULIN ASPART
  19. TAMSULOSIN [Concomitant]
     Active Substance: TAMSULOSIN
  20. VITAMIN B12 [Concomitant]
     Active Substance: CYANOCOBALAMIN
  21. DEXAMETHASONE. [Suspect]
     Active Substance: DEXAMETHASONE
     Dosage: 8 MG, UNK
     Route: 042
     Dates: start: 20180613
  22. ACYCLOVIR                          /00587301/ [Concomitant]
     Active Substance: ACYCLOVIR
  23. LEVEMIR [Concomitant]
     Active Substance: INSULIN DETEMIR
  24. MELATONIN [Concomitant]
     Active Substance: MELATONIN
  25. MUCINEX [Concomitant]
     Active Substance: GUAIFENESIN
  26. DIPHENHYDRAMINE HCL [Concomitant]
     Active Substance: DIPHENHYDRAMINE HYDROCHLORIDE
  27. UBIDECARENONE [Concomitant]
     Active Substance: UBIDECARENONE
  28. VIIBRYD [Concomitant]
     Active Substance: VILAZODONE HYDROCHLORIDE

REACTIONS (5)
  - Escherichia infection [Not Recovered/Not Resolved]
  - Asthenia [Recovering/Resolving]
  - Clostridium difficile infection [Not Recovered/Not Resolved]
  - Cardiac failure congestive [Recovering/Resolving]
  - Fall [Recovered/Resolved]

NARRATIVE: CASE EVENT DATE: 20180306
